FAERS Safety Report 9565423 (Version 1)
Quarter: 2013Q3

REPORT INFORMATION
  Report Type: Spontaneous
  Country: US (occurrence: US)
  Receive Date: 20130930
  Receipt Date: 20130930
  Transmission Date: 20140515
  Serious: No
  Sender: FDA-Public Use
  Company Number: US-BAYER-2013-117513

PATIENT
  Age: 84 Year
  Sex: Female
  Weight: 77.1 kg

DRUGS (3)
  1. ALEVE CAPLET [Suspect]
     Indication: ARTHRITIS
     Dosage: 1-2 DF OTHER FREQUENCY
     Route: 048
     Dates: start: 2010
  2. ADVIL [CHLORPHENAMINE MALEATE,IBUPROFEN,PSEUDOEPHEDRINE HYDROCHLOR [Concomitant]
  3. HYDROCODONE [HYDROCODONE] [Concomitant]

REACTIONS (1)
  - Drug effect delayed [None]
